FAERS Safety Report 17403016 (Version 1)
Quarter: 2020Q1

REPORT INFORMATION
  Report Type: Spontaneous
  Country: HN (occurrence: HN)
  Receive Date: 20200211
  Receipt Date: 20200211
  Transmission Date: 20200409
  Serious: Yes (Death, Other)
  Sender: FDA-Public Use
  Company Number: HN-SA-2020SA034142

PATIENT
  Age: 52 Year
  Sex: Male
  Weight: 49.8 kg

DRUGS (1)
  1. LANTUS SOLOSTAR [Suspect]
     Active Substance: INSULIN GLARGINE
     Indication: DIABETES MELLITUS
     Dosage: 10 IU IN MORNING AND 10 IU AT NIGHT, BID
     Route: 065
     Dates: start: 2012, end: 20191212

REACTIONS (5)
  - Renal failure [Fatal]
  - Inappropriate schedule of product administration [Unknown]
  - Aphasia [Unknown]
  - Blindness unilateral [Unknown]
  - Foot amputation [Unknown]

NARRATIVE: CASE EVENT DATE: 2013
